FAERS Safety Report 9687938 (Version 2)
Quarter: 2013Q4

REPORT INFORMATION
  Report Type: Spontaneous
  Country: GB (occurrence: None)
  Receive Date: 20131112
  Receipt Date: 20131216
  Transmission Date: 20140711
  Serious: Yes (Other)
  Sender: FDA-Public Use
  Company Number: 2013AP009474

PATIENT
  Age: 85 Year
  Sex: Female

DRUGS (16)
  1. PERINDOPRIL ERBUMINE [Suspect]
     Indication: HYPERTENSION
     Dosage: 4 MG; UNKNOWN; PO; UNKNOWN
     Route: 048
     Dates: start: 20130320, end: 20130412
  2. ADCAL/ 000569018 (CARBAZOCHROME) [Concomitant]
  3. ALENDRONIC ACID (ALENDRONIC ACID) [Concomitant]
  4. ASPIRIN (ACETYLSALICYLIC ACID) [Concomitant]
  5. ATORVASTATIN (ATORVASTATIN) [Concomitant]
  6. BENDROFLUMETHIAZIDE (BENDROFLUMETHAZIDE) [Concomitant]
  7. BRINZOLAMIDE (BRINZOLAMIDE) [Concomitant]
  8. CLOPIDOGREL (CLOPIDOGREL) [Concomitant]
  9. NAPROXEN (NAPROXEN) [Concomitant]
  10. OMEPRAZOLE (OMEPRAZOLE) [Concomitant]
  11. PARACETAMOL (PARACETAMOL) [Concomitant]
  12. PREGABALIN (PREGABALIN) [Concomitant]
  13. RANITIDINE (RANITIDINE) [Concomitant]
  14. RANITIDINE (RANITIDINE) [Concomitant]
  15. SYSTANE (RHINARIS) [Concomitant]
  16. TIMOLOL (TIMOLOL) (NONE) [Concomitant]

REACTIONS (1)
  - Raynaud^s phenomenon [None]
